FAERS Safety Report 17508044 (Version 1)
Quarter: 2020Q1

REPORT INFORMATION
  Report Type: Spontaneous
  Country: CN (occurrence: CN)
  Receive Date: 20200305
  Receipt Date: 20200305
  Transmission Date: 20200409
  Serious: Yes (Hospitalization)
  Sender: FDA-Public Use
  Company Number: CN-BAXTER-2020BAX004902

PATIENT
  Age: 33 Year
  Sex: Female
  Weight: 61 kg

DRUGS (12)
  1. DOXORUBICIN HYDROCHLORIDE. [Suspect]
     Active Substance: DOXORUBICIN HYDROCHLORIDE
     Dosage: FOURTH CYCLE, DOXORUBICIN HYDROCHLORIDE + STERILE WATER
     Route: 041
     Dates: start: 20200226
  2. STERILE WATER [Suspect]
     Active Substance: WATER
     Indication: MEDICATION DILUTION
     Dosage: FIRST AND SECOND CYCLE, DOXORUBICIN HYDROCHLORIDE + STERILE WATER FOR INJECTION
     Route: 041
  3. STERILE WATER [Suspect]
     Active Substance: WATER
     Dosage: THIRD CYCLE, DOXORUBICIN HYDROCHLORIDE 93 MG + STERILE WATER FOR INJECTION 46.5 ML
     Route: 041
     Dates: start: 20200205, end: 20200205
  4. 0.9% SODIUM CHLORIDE INJECTION [Suspect]
     Active Substance: SODIUM CHLORIDE
     Dosage: FOURTH CYCLE, ENDOXAN + 0.9% SODIUM CHLORIDE
     Route: 041
     Dates: start: 20200226
  5. DOXORUBICIN HYDROCHLORIDE. [Suspect]
     Active Substance: DOXORUBICIN HYDROCHLORIDE
     Indication: INVASIVE DUCTAL BREAST CARCINOMA
     Dosage: FIRST AND SECOND CYCLE, DOXORUBICIN HYDROCHLORIDE +STERILE WATER OF INJECTION
     Route: 041
  6. ENDOXAN [Suspect]
     Active Substance: CYCLOPHOSPHAMIDE
     Indication: INVASIVE DUCTAL BREAST CARCINOMA
     Dosage: FIRST AND SECOND CYCLE, ENDOXAN+0.9% SODIUM CHLORIDE
     Route: 041
  7. 0.9% SODIUM CHLORIDE INJECTION [Suspect]
     Active Substance: SODIUM CHLORIDE
     Dosage: THIRD CYCLE, ENDOXAN 930 MG +0.9% SODIUM CHLORIDE 100 ML
     Route: 041
     Dates: start: 20200205, end: 20200205
  8. ENDOXAN [Suspect]
     Active Substance: CYCLOPHOSPHAMIDE
     Dosage: THIRD CYCLE, ENDOXAN 930 MG + 0.9% SODIUM CHLORIDE 100 ML
     Route: 041
     Dates: start: 20200205, end: 20200205
  9. ENDOXAN [Suspect]
     Active Substance: CYCLOPHOSPHAMIDE
     Dosage: FOURTH CYCLE, ENDOXAN+0.9% SODIUM CHLORIDE
     Route: 041
     Dates: start: 20200226
  10. STERILE WATER [Suspect]
     Active Substance: WATER
     Dosage: FOURTH CYCLE, DOXORUBICIN HYDROCHLORIDE +STERILE WATER FOR INJECTION
     Route: 041
     Dates: start: 20200226
  11. 0.9% SODIUM CHLORIDE INJECTION [Suspect]
     Active Substance: SODIUM CHLORIDE
     Indication: MEDICATION DILUTION
     Dosage: FIRST AND SECOND CYCLE, ENDOXAN+0.9% SODIUM CHLORIDE
     Route: 041
  12. DOXORUBICIN HYDROCHLORIDE. [Suspect]
     Active Substance: DOXORUBICIN HYDROCHLORIDE
     Dosage: THIRD CYCLE, DOXORUBICIN HYDROCHLORIDE 93 MG + STERILE WATER FOR INJECTION 46.5 ML
     Route: 041
     Dates: start: 20200205, end: 20200205

REACTIONS (3)
  - Pyrexia [Recovering/Resolving]
  - White blood cell count decreased [Recovered/Resolved]
  - Neutrophil count decreased [Recovered/Resolved]

NARRATIVE: CASE EVENT DATE: 20200220
